FAERS Safety Report 7462985-9 (Version None)
Quarter: 2011Q2

REPORT INFORMATION
  Report Type: 
  Country: None (occurrence: None)
  Receive Date: 20110506
  Receipt Date: 20110427
  Transmission Date: 20111010
  Serious: Yes (Hospitalization)
  Sender: FDA-Public Use
  Company Number: FR-JNJFOC-20110306654

PATIENT
  Age: 48 Year
  Sex: Female

DRUGS (3)
  1. MARAVIROC [Concomitant]
  2. INTELENCE [Suspect]
     Indication: HIV INFECTION
     Route: 048
     Dates: end: 20110314
  3. ISENTRESS [Concomitant]

REACTIONS (5)
  - ABDOMINAL PAIN [None]
  - PROTHROMBIN TIME RATIO DECREASED [None]
  - VOMITING [None]
  - TRANSAMINASES INCREASED [None]
  - JAUNDICE [None]
